FAERS Safety Report 21902997 (Version 1)
Quarter: 2023Q1

REPORT INFORMATION
  Report Type: Spontaneous
  Country: US (occurrence: None)
  Receive Date: 20230123
  Receipt Date: 20230123
  Transmission Date: 20230418
  Serious: No
  Sender: FDA-Public Use
  Company Number: None

PATIENT
  Sex: Female
  Weight: 64.86 kg

DRUGS (21)
  1. LENALIDOMIDE [Suspect]
     Active Substance: LENALIDOMIDE
     Indication: Myelodysplastic syndrome
     Dosage: FREQUENCY : DAILY;?
     Route: 048
  2. ACYCLOVIR [Concomitant]
     Active Substance: ACYCLOVIR
  3. CARAFATE [Concomitant]
     Active Substance: SUCRALFATE
  4. CLOPIDOGREL [Concomitant]
     Active Substance: CLOPIDOGREL BISULFATE
  5. FAMOTIDINE [Concomitant]
     Active Substance: FAMOTIDINE
  6. GEMTESA [Concomitant]
     Active Substance: VIBEGRON
  7. ISOSORBIDE MONONITRATE [Concomitant]
     Active Substance: ISOSORBIDE MONONITRATE
  8. LAMOTRIGINE [Concomitant]
     Active Substance: LAMOTRIGINE
  9. LYRICA [Concomitant]
     Active Substance: PREGABALIN
  10. METOPROLOL [Concomitant]
     Active Substance: METOPROLOL
  11. NITROGLYCERIN [Concomitant]
     Active Substance: NITROGLYCERIN
  12. PANTOPRAZOLE [Concomitant]
     Active Substance: PANTOPRAZOLE
  13. POLYETHYLENE GLYCOL 3350 [Concomitant]
     Active Substance: POLYETHYLENE GLYCOL 3350
  14. PRAVASTATIN [Concomitant]
     Active Substance: PRAVASTATIN
  15. SYMBICORT [Concomitant]
     Active Substance: BUDESONIDE\FORMOTEROL FUMARATE DIHYDRATE
  16. TOPAMAX [Concomitant]
     Active Substance: TOPIRAMATE
  17. TRAMADOL [Concomitant]
     Active Substance: TRAMADOL
  18. TRINTELLIX [Concomitant]
     Active Substance: VORTIOXETINE HYDROBROMIDE
  19. TYLENOL 8HR [Concomitant]
     Active Substance: ACETAMINOPHEN
  20. VITAMIN B12 [Concomitant]
     Active Substance: CYANOCOBALAMIN
  21. VITAMIN D2 [Concomitant]
     Active Substance: ERGOCALCIFEROL

REACTIONS (2)
  - Vomiting [None]
  - Full blood count decreased [None]
